FAERS Safety Report 6381143-2 (Version None)
Quarter: 2009Q3

REPORT INFORMATION
  Report Type: 
  Country: None (occurrence: None)
  Receive Date: 20090925
  Receipt Date: 20090925
  Transmission Date: 20100115
  Serious: No
  Sender: FDA-Public Use
  Company Number: None

PATIENT
  Age: 76 Year
  Sex: Female
  Weight: 54.4316 kg

DRUGS (2)
  1. EFFEXOR XR [Suspect]
     Indication: DEATH OF COMPANION
     Dosage: ONCE DAILY
     Dates: start: 20011001, end: 20071001
  2. EFFEXOR XR [Suspect]
     Dates: start: 20090401, end: 20090823

REACTIONS (1)
  - DRUG WITHDRAWAL SYNDROME [None]
